FAERS Safety Report 7812119-3 (Version None)
Quarter: 2011Q4

REPORT INFORMATION
  Report Type: 
  Country: None (occurrence: None)
  Receive Date: 20111013
  Receipt Date: 20110929
  Transmission Date: 20120403
  Serious: Yes (Other)
  Sender: FDA-Public Use
  Company Number: US-JNJFOC-20111003006

PATIENT
  Age: 53 Year
  Sex: Female

DRUGS (1)
  1. LISTERINE TOTAL CARE ANTICAVITY MOUTHWASH CINNAMINT [Suspect]
     Indication: DENTAL DISORDER PROPHYLAXIS
     Dosage: FULL CAP TWICE A DAY
     Route: 048
     Dates: start: 20110925, end: 20110928

REACTIONS (3)
  - ORAL DISCOMFORT [None]
  - ORAL MUCOSAL EXFOLIATION [None]
  - PRODUCT QUALITY ISSUE [None]
